FAERS Safety Report 13117931 (Version 2)
Quarter: 2017Q2

REPORT INFORMATION
  Report Type: Spontaneous
  Country: US (occurrence: US)
  Receive Date: 20170116
  Receipt Date: 20170404
  Transmission Date: 20170830
  Serious: No
  Sender: FDA-Public Use
  Company Number: US-JNJFOC-20161210173

PATIENT
  Age: 52 Year
  Sex: Female

DRUGS (2)
  1. METHYLPHENIDATE HYDROCHLORIDE. [Suspect]
     Active Substance: METHYLPHENIDATE HYDROCHLORIDE
     Indication: PRODUCT USED FOR UNKNOWN INDICATION
     Dosage: THREE TABLETS IN THE MORNING AND 2 TABLETS IN THE AFTERNOON.
     Route: 065
  2. CONCERTA [Suspect]
     Active Substance: METHYLPHENIDATE HYDROCHLORIDE
     Indication: PRODUCT USED FOR UNKNOWN INDICATION
     Dosage: THREE TABLETS IN MORNING AND TWO IN AFTERNOON
     Route: 048
     Dates: start: 201502

REACTIONS (4)
  - Off label use [Unknown]
  - Inappropriate schedule of drug administration [Unknown]
  - Therapeutic response changed [Unknown]
  - Drug dispensing error [Unknown]

NARRATIVE: CASE EVENT DATE: 201502
